FAERS Safety Report 24662522 (Version 1)
Quarter: 2024Q4

REPORT INFORMATION
  Report Type: Spontaneous
  Country: US (occurrence: None)
  Receive Date: 20241125
  Receipt Date: 20241125
  Transmission Date: 20250115
  Serious: No
  Sender: AXSOME THERAPEUTICS, INC.
  Company Number: US-Axsome Therapeutics, Inc.-AXS202410-001704

PATIENT
  Age: 79 Year
  Sex: Male

DRUGS (4)
  1. AUVELITY [Suspect]
     Active Substance: BUPROPION HYDROCHLORIDE\DEXTROMETHORPHAN HYDROBROMIDE
     Indication: Depression
     Dosage: 45-105 MG
     Route: 048
     Dates: start: 2024, end: 2024
  2. AUVELITY [Suspect]
     Active Substance: BUPROPION HYDROCHLORIDE\DEXTROMETHORPHAN HYDROBROMIDE
     Indication: Anxiety
  3. FLUVOXAMINE [Concomitant]
     Active Substance: FLUVOXAMINE
     Indication: Obsessive-compulsive disorder
     Route: 065
  4. ELIQUIS [Concomitant]
     Active Substance: APIXABAN
     Indication: Thrombosis
     Route: 065

REACTIONS (7)
  - Drug tolerance [Unknown]
  - Drug effect less than expected [Unknown]
  - Product use issue [Recovered/Resolved]
  - Therapy interrupted [Recovered/Resolved]
  - Off label use [Unknown]
  - Insurance issue [Unknown]
  - Product prescribing issue [Unknown]
